FAERS Safety Report 4763210-X (Version None)
Quarter: 2005Q3

REPORT INFORMATION
  Report Type: 
  Country: None (occurrence: None)
  Receive Date: 20050902
  Receipt Date: 20050822
  Transmission Date: 20060218
  Serious: Yes (Hospitalization)
  Sender: FDA-Public Use
  Company Number: 197890

PATIENT
  Age: 66 Year
  Sex: Female
  Weight: 74.8435 kg

DRUGS (6)
  1. AVONEX [Suspect]
     Indication: MULTIPLE SCLEROSIS
     Dosage: 30 UG;QW;IM
     Route: 030
  2. SYNTHROID [Concomitant]
  3. PAXIL [Concomitant]
  4. MEDICATION (NOS) [Concomitant]
  5. AMANTADINE [Concomitant]
  6. COUMADIN [Concomitant]

REACTIONS (16)
  - ANOREXIA [None]
  - BREAST CANCER FEMALE [None]
  - BREAST MASS [None]
  - CHEST PAIN [None]
  - CHOLELITHIASIS [None]
  - DIARRHOEA [None]
  - ELECTROCARDIOGRAM ABNORMAL [None]
  - GASTRIC DISORDER [None]
  - HEADACHE [None]
  - NAUSEA [None]
  - OXYGEN SATURATION DECREASED [None]
  - PAIN [None]
  - POST PROCEDURAL HAEMATOMA [None]
  - PULMONARY EMBOLISM [None]
  - THROMBOSIS [None]
  - VOMITING [None]
